FAERS Safety Report 15122580 (Version 1)
Quarter: 2018Q3

REPORT INFORMATION
  Report Type: Spontaneous
  Country: DE (occurrence: DE)
  Receive Date: 20180709
  Receipt Date: 20180709
  Transmission Date: 20181010
  Serious: Yes (Life-Threatening, Hospitalization)
  Sender: FDA-Public Use
  Company Number: DE-ELI_LILLY_AND_COMPANY-DE201807001880

PATIENT
  Sex: Male
  Weight: 107 kg

DRUGS (3)
  1. JARDIANCE [Suspect]
     Active Substance: EMPAGLIFLOZIN
     Indication: PRODUCT USED FOR UNKNOWN INDICATION
     Dosage: 25 MG, DAILY
     Route: 065
     Dates: start: 20161025
  2. INSULIN [Suspect]
     Active Substance: INSULIN NOS
     Indication: PRODUCT USED FOR UNKNOWN INDICATION
     Dosage: 120 IU, UNKNOWN
     Route: 065
     Dates: end: 20161104
  3. TRULICITY [Suspect]
     Active Substance: DULAGLUTIDE
     Indication: PRODUCT USED FOR UNKNOWN INDICATION
     Dosage: 1.5 MG, DAILY
     Route: 058
     Dates: start: 20161104

REACTIONS (3)
  - Diabetic ketoacidosis [Recovered/Resolved]
  - Inappropriate schedule of drug administration [Unknown]
  - Overdose [Unknown]

NARRATIVE: CASE EVENT DATE: 20161104
